FAERS Safety Report 13042562 (Version 1)
Quarter: 2016Q4

REPORT INFORMATION
  Report Type: Spontaneous
  Country: US (occurrence: US)
  Receive Date: 20161219
  Receipt Date: 20161219
  Transmission Date: 20170207
  Serious: Yes (Other)
  Sender: FDA-Public Use
  Company Number: US-PFIZER INC-2016573642

PATIENT
  Age: 74 Year
  Sex: Male

DRUGS (1)
  1. ELELYSO [Suspect]
     Active Substance: TALIGLUCERASE ALFA
     Indication: GAUCHER^S DISEASE TYPE I
     Dosage: UNK
     Dates: start: 201502

REACTIONS (5)
  - Hepatomegaly [Unknown]
  - Gilbert^s syndrome [Unknown]
  - Splenomegaly [Unknown]
  - Scarlet fever [Unknown]
  - Jaundice [Unknown]
